FAERS Safety Report 6249092-8 (Version None)
Quarter: 2009Q2

REPORT INFORMATION
  Report Type: 
  Country: None (occurrence: None)
  Receive Date: 20090629
  Receipt Date: 20090615
  Transmission Date: 20091009
  Serious: Yes (Hospitalization)
  Sender: FDA-Public Use
  Company Number: MX-ROCHE-639026

PATIENT
  Sex: Female
  Weight: 63 kg

DRUGS (2)
  1. SAQUINAVIR [Suspect]
     Route: 048
     Dates: start: 20090101
  2. COMBIVIR [Concomitant]
     Indication: HIV INFECTION
     Route: 048
     Dates: start: 20090101

REACTIONS (6)
  - ANOREXIA [None]
  - GASTRIC INFECTION [None]
  - GASTROINTESTINAL INFECTION [None]
  - KIDNEY INFECTION [None]
  - MALAISE [None]
  - NAIL DISCOLOURATION [None]
